FAERS Safety Report 9331663 (Version 2)
Quarter: 2014Q1

REPORT INFORMATION
  Report Type: Spontaneous
  Country: DK (occurrence: DK)
  Receive Date: 20130605
  Receipt Date: 20140307
  Transmission Date: 20141002
  Serious: Yes (Hospitalization)
  Sender: FDA-Public Use
  Company Number: DK-PFIZER INC-2013169856

PATIENT
  Age: 39 Year
  Sex: Female

DRUGS (2)
  1. CHAMPIX [Suspect]
     Indication: SMOKING CESSATION THERAPY
     Dosage: 1 MG 2X/DAY
     Route: 048
     Dates: start: 20121014, end: 20130118
  2. SERTRALIN ACTAVIS [Concomitant]
     Indication: DEPRESSION
     Dosage: 100 MG, 1X/DAY
     Dates: start: 2006

REACTIONS (4)
  - Diabetic ketoacidosis [Not Recovered/Not Resolved]
  - Weight decreased [Not Recovered/Not Resolved]
  - Thirst [Not Recovered/Not Resolved]
  - Malaise [Not Recovered/Not Resolved]
